FAERS Safety Report 5127364-8 (Version None)
Quarter: 2006Q4

REPORT INFORMATION
  Report Type: 
  Country: None (occurrence: None)
  Receive Date: 20061010
  Receipt Date: 20061003
  Transmission Date: 20070319
  Serious: Yes (Other)
  Sender: FDA-Public Use
  Company Number: B0440967A

PATIENT
  Age: 12 Year
  Sex: Male

DRUGS (7)
  1. EPIVIR [Suspect]
     Indication: HIV INFECTION
     Dosage: 150 MG/TWICER PER DAY/
  2. EFAVIRENZ [Suspect]
     Indication: HIV INFECTION
     Dosage: 300 MG/ PER DAY/
  3. ISONIAZID [Concomitant]
  4. RIFAMPICIN [Concomitant]
  5. ETHAMBUTOL HYDROCHLORIDE [Concomitant]
  6. PYRAZINAMIDE [Concomitant]
  7. STAVUDINE [Suspect]
     Indication: HIV INFECTION
     Dosage: 30 MG/ TWICE PER DAY/

REACTIONS (3)
  - CONDITION AGGRAVATED [None]
  - IMMUNE RECONSTITUTION SYNDROME [None]
  - LYMPH NODE TUBERCULOSIS [None]
